FAERS Safety Report 5448296-1 (Version None)
Quarter: 2007Q3

REPORT INFORMATION
  Report Type: 
  Country: None (occurrence: None)
  Receive Date: 20070911
  Receipt Date: 20070904
  Transmission Date: 20080115
  Serious: Yes (Hospitalization)
  Sender: FDA-Public Use
  Company Number: PHEH2007US05064

PATIENT
  Age: 70 Year
  Sex: Female

DRUGS (5)
  1. ZELNORM [Suspect]
     Indication: CONSTIPATION
     Dosage: 2 MG, BID
     Route: 048
     Dates: start: 20060101, end: 20070407
  2. ATACAND [Concomitant]
     Indication: HYPERTENSION
     Dosage: 32 MG, QD
     Route: 048
     Dates: start: 20020111
  3. NEXIUM [Concomitant]
     Indication: HIATUS HERNIA
     Dosage: 40 MG, QD
     Route: 048
     Dates: start: 20021111
  4. RELAFEN [Concomitant]
     Dosage: 500 MG, QD
     Route: 048
     Dates: start: 20050420
  5. ZOCOR [Concomitant]
     Indication: HYPERLIPIDAEMIA
     Dosage: 40 MG, QD
     Route: 048
     Dates: start: 20070301

REACTIONS (4)
  - CARDIAC DISORDER [None]
  - CATHETERISATION CARDIAC [None]
  - CHEST PAIN [None]
  - DYSPNOEA [None]
